FAERS Safety Report 23319539 (Version 1)
Quarter: 2023Q4

REPORT INFORMATION
  Report Type: Spontaneous
  Country: US (occurrence: US)
  Receive Date: 20231220
  Receipt Date: 20231220
  Transmission Date: 20240110
  Serious: No
  Sender: FDA-Public Use
  Company Number: US-Accord-297870

PATIENT
  Sex: Female
  Weight: 63.5 kg

DRUGS (1)
  1. BUPROPION HYDROCHLORIDE [Suspect]
     Active Substance: BUPROPION HYDROCHLORIDE
     Indication: Anxiety
     Dosage: STRENGTH: 150 MG; EXTENDED-RELEASE TABLETS; ONE 150MG TABLET A DAY
     Route: 065

REACTIONS (2)
  - Hypersensitivity [Recovered/Resolved]
  - Decreased appetite [Recovered/Resolved]
